FAERS Safety Report 8011425 (Version 2)
Quarter: 2020Q1

REPORT INFORMATION
  Report Type: Report from Study
  Country: JP (occurrence: JP)
  Receive Date: 20110627
  Receipt Date: 20200212
  Transmission Date: 20200409
  Serious: Yes (Life-Threatening, Hospitalization)
  Sender: FDA-Public Use
  Company Number: JP-CELGENEUS-087-21880-11062526

PATIENT
  Age: 83 Year
  Sex: Male

DRUGS (17)
  1. REVLIMID [Suspect]
     Active Substance: LENALIDOMIDE
     Dosage: 10 MILLIGRAM
     Route: 048
     Dates: start: 20110113, end: 20110201
  2. LENADEX [Suspect]
     Active Substance: DEXAMETHASONE ACETATE
     Dosage: 20 MILLIGRAM
     Route: 048
     Dates: start: 20110113, end: 20110113
  3. LASIX [Concomitant]
     Active Substance: FUROSEMIDE
     Indication: ILL-DEFINED DISORDER
     Dosage: 40 MILLIGRAM
     Route: 048
     Dates: start: 20101217
  4. DIFLUCAN [Concomitant]
     Active Substance: FLUCONAZOLE
     Indication: PROPHYLAXIS
     Dosage: 100 MILLIGRAM
     Route: 048
     Dates: start: 20101217
  5. ALDACTONE A [Concomitant]
     Active Substance: SPIRONOLACTONE
     Indication: ILL-DEFINED DISORDER
     Dosage: 50 MILLIGRAM
     Route: 048
     Dates: start: 20101217
  6. PARIET [Concomitant]
     Active Substance: RABEPRAZOLE SODIUM
     Indication: PROPHYLAXIS
     Dosage: 10 MILLIGRAM
     Route: 048
     Dates: start: 20101217
  7. ZOMETA [Concomitant]
     Active Substance: ZOLEDRONIC ACID
     Indication: ILL-DEFINED DISORDER
     Dosage: 4 MILLIGRAM
     Route: 041
     Dates: start: 20110124, end: 20110214
  8. SULPERAZON [Concomitant]
     Active Substance: CEFOPERAZONE SODIUM\SULBACTAM SODIUM
     Indication: PROPHYLAXIS
     Dosage: 2 GRAM
     Route: 041
     Dates: start: 20110222, end: 20110307
  9. REVLIMID [Suspect]
     Active Substance: LENALIDOMIDE
     Indication: PLASMA CELL MYELOMA
     Dosage: 10 MILLIGRAM
     Route: 048
     Dates: start: 20101217, end: 20101227
  10. CALONAL [Concomitant]
     Active Substance: ACETAMINOPHEN
     Indication: ILL-DEFINED DISORDER
     Dosage: 1800 MILLIGRAM
     Route: 048
     Dates: start: 20101217
  11. BAYASPIRIN [Concomitant]
     Active Substance: ASPIRIN
     Indication: PROPHYLAXIS
     Dosage: 100 MILLIGRAM
     Route: 048
     Dates: start: 20101217
  12. RYTHMODAN R [Concomitant]
     Active Substance: DISOPYRAMIDE PHOSPHATE
     Indication: VENTRICULAR TACHYCARDIA
     Dosage: 150 MILLIGRAM
     Route: 048
     Dates: start: 20101217
  13. ELCITONIN [Concomitant]
     Active Substance: ELCATONIN
     Indication: ILL-DEFINED DISORDER
     Dosage: 40 UNITS
     Route: 041
     Dates: start: 20110127, end: 20110307
  14. LENADEX [Suspect]
     Active Substance: DEXAMETHASONE ACETATE
     Indication: PLASMA CELL MYELOMA
     Dosage: 20 MILLIGRAM
     Route: 048
     Dates: start: 20101217, end: 20101217
  15. ARICEPT [Concomitant]
     Active Substance: DONEPEZIL HYDROCHLORIDE
     Indication: DEMENTIA
     Dosage: 5 MILLIGRAM
     Route: 048
     Dates: start: 20101217
  16. ZOSYN [Concomitant]
     Active Substance: PIPERACILLIN SODIUM\TAZOBACTAM SODIUM
     Indication: PROPHYLAXIS
     Dosage: 9 GRAM
     Route: 041
     Dates: start: 20110218, end: 20110221
  17. FENTOS TAPE [Concomitant]
     Active Substance: FENTANYL
     Indication: ILL-DEFINED DISORDER
     Dosage: 2 MILLIGRAM
     Route: 062
     Dates: start: 20101217

REACTIONS (4)
  - Sepsis [Recovered/Resolved]
  - Leukopenia [Recovered/Resolved]
  - Pneumonia [Recovered/Resolved]
  - Neutropenia [Recovered/Resolved]

NARRATIVE: CASE EVENT DATE: 20101227
